FAERS Safety Report 25228607 (Version 2)
Quarter: 2025Q3

REPORT INFORMATION
  Report Type: Spontaneous
  Country: US (occurrence: US)
  Receive Date: 20250423
  Receipt Date: 20250902
  Transmission Date: 20251020
  Serious: Yes (Other)
  Sender: RANBAXY
  Company Number: US-MIMS-SUN-2025-USA-53334

PATIENT
  Sex: Female

DRUGS (1)
  1. ILUMYA [Suspect]
     Active Substance: TILDRAKIZUMAB-ASMN
     Indication: Psoriasis
     Route: 065

REACTIONS (4)
  - Urinary tract infection [Unknown]
  - Cystitis [Unknown]
  - Drug ineffective [Unknown]
  - Eczema [Unknown]
